FAERS Safety Report 6428760-9 (Version None)
Quarter: 2009Q4

REPORT INFORMATION
  Report Type: 
  Country: None (occurrence: None)
  Receive Date: 20091105
  Receipt Date: 20091030
  Transmission Date: 20100525
  Serious: Yes (Hospitalization)
  Sender: FDA-Public Use
  Company Number: ZA-AVENTIS-200921601GDDC

PATIENT
  Age: 62 Year
  Sex: Female

DRUGS (3)
  1. TAXOTERE [Suspect]
     Dosage: DOSE: 60 MG ON DAY 1, DAY 8, DAY 15
     Route: 042
     Dates: start: 20080430, end: 20080430
  2. BETANOID [Concomitant]
     Indication: PROPHYLAXIS
     Route: 041
     Dates: start: 20080430, end: 20080430
  3. ZOMETA [Concomitant]
     Route: 041
     Dates: start: 20080430, end: 20080430

REACTIONS (1)
  - HYPERCALCAEMIA [None]
